FAERS Safety Report 6802351-X (Version None)
Quarter: 2010Q2

REPORT INFORMATION
  Report Type: 
  Country: None (occurrence: None)
  Receive Date: 20100628
  Receipt Date: 20100617
  Transmission Date: 20101027
  Serious: No
  Sender: FDA-Public Use
  Company Number: US-BIOGENIDEC-2010BI020972

PATIENT
  Age: 47 Year
  Sex: Female

DRUGS (2)
  1. TYSABRI [Suspect]
     Indication: MULTIPLE SCLEROSIS
     Route: 042
     Dates: start: 20070628, end: 20081126
  2. TYSABRI [Suspect]
     Route: 042
     Dates: start: 20081223

REACTIONS (2)
  - FEELING HOT [None]
  - IRRITABILITY [None]
